FAERS Safety Report 9062272 (Version 1)
Quarter: 2013Q1

REPORT INFORMATION
  Report Type: Spontaneous
  Country: US (occurrence: None)
  Receive Date: 20130122
  Receipt Date: 20130122
  Transmission Date: 20140127
  Serious: Yes (Hospitalization, Other)
  Sender: FDA-Public Use
  Company Number: 2013AM006968

PATIENT
  Age: 73 Year
  Sex: Female
  Weight: 86.64 kg

DRUGS (1)
  1. SYMLINPEN 60 (PRAMLINTIDE ACETATE) PEN-INJECTOR (1.0 MG/ML) [Suspect]
     Indication: TYPE 1 DIABETES MELLITUS
     Route: 058
     Dates: start: 20121217

REACTIONS (10)
  - Loss of consciousness [None]
  - Dehydration [None]
  - Influenza [None]
  - Gastrointestinal viral infection [None]
  - Blood pressure decreased [None]
  - Bronchitis [None]
  - Dysarthria [None]
  - Feeling abnormal [None]
  - Blood glucose increased [None]
  - Decreased appetite [None]
